FAERS Safety Report 14222439 (Version 1)
Quarter: 2017Q4

REPORT INFORMATION
  Report Type: Report from Study
  Country: FR (occurrence: FR)
  Receive Date: 20171124
  Receipt Date: 20171124
  Transmission Date: 20180321
  Serious: Yes (Other)
  Sender: FDA-Public Use
  Company Number: FR-SUN PHARMACEUTICAL INDUSTRIES LTD-2017RR-155208

PATIENT
  Age: 67 Year
  Sex: Male

DRUGS (1)
  1. VALACICLOVIR [Suspect]
     Active Substance: VALACYCLOVIR HYDROCHLORIDE
     Indication: OPHTHALMIC HERPES SIMPLEX
     Dosage: 2000 MG, DAILY
     Route: 065

REACTIONS (4)
  - Pathogen resistance [Unknown]
  - Treatment noncompliance [Unknown]
  - Disease recurrence [Unknown]
  - Acquired gene mutation [Unknown]
